FAERS Safety Report 14156013 (Version 1)
Quarter: 2017Q4

REPORT INFORMATION
  Report Type: Spontaneous
  Country: US (occurrence: US)
  Receive Date: 20171103
  Receipt Date: 20171103
  Transmission Date: 20180321
  Serious: No
  Sender: FDA-Public Use
  Company Number: US-CHARTWELL PHARMA-2033137

PATIENT
  Sex: Female

DRUGS (2)
  1. VITAMIN A (RETINOL,TOCOPHEROL) [Interacting]
     Active Substance: RETINOL\TOCOPHEROL
  2. DOXYCYCLINE HYCLATE. [Suspect]
     Active Substance: DOXYCYCLINE HYCLATE
     Indication: PRODUCT USED FOR UNKNOWN INDICATION
     Route: 048

REACTIONS (4)
  - Tenderness [Unknown]
  - Pain in extremity [Unknown]
  - Bone pain [Unknown]
  - Drug interaction [Unknown]
